FAERS Safety Report 11528192 (Version 1)
Quarter: 2015Q3

REPORT INFORMATION
  Report Type: Spontaneous
  Country: US (occurrence: US)
  Receive Date: 20150921
  Receipt Date: 20150921
  Transmission Date: 20151125
  Serious: No
  Sender: FDA-Public Use
  Company Number: US-ASTRAZENECA-2015SE87337

PATIENT
  Sex: Female
  Weight: 61.2 kg

DRUGS (2)
  1. MOVANTIK [Suspect]
     Active Substance: NALOXEGOL OXALATE
     Indication: CONSTIPATION
     Route: 048
     Dates: start: 20150903
  2. LINZESS [Concomitant]
     Active Substance: LINACLOTIDE
     Indication: PAIN

REACTIONS (2)
  - Pain [Unknown]
  - Memory impairment [Unknown]
